FAERS Safety Report 24617394 (Version 4)
Quarter: 2025Q2

REPORT INFORMATION
  Report Type: Report from Study
  Country: CA (occurrence: CA)
  Receive Date: 20241114
  Receipt Date: 20250404
  Transmission Date: 20250717
  Serious: Yes (Other)
  Sender: JOHNSON AND JOHNSON
  Company Number: CA-JNJFOC-20240743942

PATIENT
  Age: 56 Year
  Sex: Male

DRUGS (1)
  1. SIMPONI [Suspect]
     Active Substance: GOLIMUMAB
     Indication: Ankylosing spondylitis
     Route: 058
     Dates: start: 20240708

REACTIONS (5)
  - Ankylosing spondylitis [Unknown]
  - Paranasal sinus discomfort [Recovering/Resolving]
  - Upper respiratory tract infection [Recovering/Resolving]
  - Urticaria [Unknown]
  - Localised infection [Unknown]

NARRATIVE: CASE EVENT DATE: 20240708
